FAERS Safety Report 6955314-8 (Version None)
Quarter: 2010Q3

REPORT INFORMATION
  Report Type: 
  Country: None (occurrence: None)
  Receive Date: 20100830
  Receipt Date: 20100826
  Transmission Date: 20110219
  Serious: Yes (Life-Threatening)
  Sender: FDA-Public Use
  Company Number: PHHY2010US54167

PATIENT
  Sex: Female

DRUGS (9)
  1. VALTURNA [Suspect]
     Dosage: 300/320 MG DAILY
  2. LOVAZA [Suspect]
     Indication: PAIN
  3. WARFARIN SODIUM [Suspect]
     Indication: PAIN
  4. VICODIN [Suspect]
     Indication: PAIN
  5. MACROBID [Suspect]
     Indication: URINARY TRACT INFECTION
  6. HUMALOG [Concomitant]
  7. FUROSEMIDE [Concomitant]
  8. TOPROL-XL [Concomitant]
  9. NASAL SPRAY [Concomitant]
     Indication: SINUSITIS

REACTIONS (2)
  - ATRIAL FIBRILLATION [None]
  - FEELING ABNORMAL [None]
